FAERS Safety Report 21191815 (Version 1)
Quarter: 2022Q3

REPORT INFORMATION
  Report Type: Spontaneous
  Country: US (occurrence: None)
  Receive Date: 20220809
  Receipt Date: 20220809
  Transmission Date: 20221027
  Serious: Yes (unspecified)
  Sender: FDA-Public Use
  Company Number: None

PATIENT
  Sex: 0

DRUGS (1)
  1. SENSORCAINE(R) (BUPIVACAINE HCI AND EPINEPHRINE) [Suspect]
     Active Substance: BUPIVACAINE HYDROCHLORIDE\EPINEPHRINE BITARTRATE
     Dates: start: 20220808, end: 20220808

REACTIONS (2)
  - Extrapyramidal disorder [None]
  - Product quality issue [None]

NARRATIVE: CASE EVENT DATE: 20220808
